FAERS Safety Report 23262609 (Version 1)
Quarter: 2023Q4

REPORT INFORMATION
  Report Type: Report from Study
  Country: US (occurrence: US)
  Receive Date: 20231205
  Receipt Date: 20231205
  Transmission Date: 20240110
  Serious: Yes (Hospitalization, Other)
  Sender: FDA-Public Use
  Company Number: US-ABBVIE-5457739

PATIENT
  Sex: Female
  Weight: 92.986 kg

DRUGS (3)
  1. HUMIRA [Suspect]
     Active Substance: ADALIMUMAB
     Indication: Ankylosing spondylitis
     Dosage: FORM STRENGTH: 40 MILLIGRAM?CITRATE FREE
     Route: 058
     Dates: start: 2017, end: 20230706
  2. ELIQUIS [Concomitant]
     Active Substance: APIXABAN
     Indication: Anticoagulant therapy
     Dosage: FORM STRENGTH: 5 MG
  3. ASPIRIN [Concomitant]
     Active Substance: ASPIRIN
     Indication: Anticoagulant therapy
     Dosage: FORM STRENGTH: 81 MG

REACTIONS (2)
  - Squamous cell carcinoma [Recovered/Resolved]
  - Aortic stenosis [Recovering/Resolving]

NARRATIVE: CASE EVENT DATE: 20220101
